FAERS Safety Report 8604630-2 (Version None)
Quarter: 2012Q3

REPORT INFORMATION
  Report Type: 
  Country: None (occurrence: None)
  Receive Date: 20120820
  Receipt Date: 20120810
  Transmission Date: 20120928
  Serious: Yes (Death, Hospitalization, Other)
  Sender: FDA-Public Use
  Company Number: PHFR2012GB003039

PATIENT
  Sex: Female

DRUGS (3)
  1. AMISULPRIDE [Concomitant]
  2. CLOZARIL [Suspect]
     Indication: SCHIZOPHRENIA, PARANOID TYPE
     Dosage: 162.5 MG, UNK
     Route: 048
     Dates: start: 20111023, end: 20120525
  3. SERTRALINE HYDROCHLORIDE [Concomitant]
     Indication: DEPRESSION
     Dosage: 100 MG, DAILY
     Route: 048
     Dates: start: 20000101

REACTIONS (8)
  - JAUNDICE CHOLESTATIC [None]
  - GAMMA-GLUTAMYLTRANSFERASE INCREASED [None]
  - BLOOD ALKALINE PHOSPHATASE INCREASED [None]
  - CHOLELITHIASIS [None]
  - MENTAL DISORDER [None]
  - LIVER FUNCTION TEST ABNORMAL [None]
  - BILE DUCT CANCER [None]
  - ACUTE HEPATIC FAILURE [None]
